FAERS Safety Report 21936486 (Version 1)
Quarter: 2023Q1

REPORT INFORMATION
  Report Type: Report from Study
  Country: US (occurrence: US)
  Receive Date: 20230201
  Receipt Date: 20230201
  Transmission Date: 20230417
  Serious: No
  Sender: FDA-Public Use
  Company Number: US-INCYTE CORPORATION-2021IN000250

PATIENT

DRUGS (4)
  1. PEMIGATINIB [Suspect]
     Active Substance: PEMIGATINIB
     Indication: Cholangiocarcinoma
     Dosage: 13.5 MILLIGRAM
     Route: 048
     Dates: start: 20201201
  2. PEMIGATINIB [Suspect]
     Active Substance: PEMIGATINIB
     Dosage: 13.5 MILLIGRAM
     Route: 065
     Dates: start: 20210101, end: 20210108
  3. PEMIGATINIB [Suspect]
     Active Substance: PEMIGATINIB
     Dosage: 13.5 MILLIGRAM
     Route: 065
     Dates: start: 20210111
  4. CALCIUM [Suspect]
     Active Substance: CALCIUM
     Indication: Blood calcium decreased
     Route: 065

REACTIONS (12)
  - Toothache [Unknown]
  - Energy increased [Unknown]
  - Taste disorder [Unknown]
  - Erythema [Unknown]
  - Night sweats [Unknown]
  - Blood calcium decreased [Unknown]
  - Decreased appetite [Unknown]
  - Arthralgia [Unknown]
  - Fatigue [Unknown]
  - Blood phosphorus increased [Unknown]
  - Constipation [Unknown]
  - Nail disorder [Unknown]

NARRATIVE: CASE EVENT DATE: 20210101
